FAERS Safety Report 21538110 (Version 5)
Quarter: 2024Q3

REPORT INFORMATION
  Report Type: Spontaneous
  Country: US (occurrence: US)
  Receive Date: 20221101
  Receipt Date: 20240923
  Transmission Date: 20241016
  Serious: Yes (Disabling, Other)
  Sender: ORGANON
  Company Number: US-ORGANON-O2210USA002452

PATIENT
  Sex: Female
  Weight: 22.766 kg

DRUGS (3)
  1. SINGULAIR [Suspect]
     Active Substance: MONTELUKAST SODIUM
     Dosage: UNK
     Route: 048
     Dates: start: 2011, end: 2012
  2. SINGULAIR [Suspect]
     Active Substance: MONTELUKAST SODIUM
     Dosage: UNK
     Route: 065
  3. SINGULAIR [Suspect]
     Active Substance: MONTELUKAST SODIUM
     Dosage: 1 TABLET IN THE EVENING, ONCE A DAY
     Route: 048

REACTIONS (37)
  - Neuropsychological symptoms [Not Recovered/Not Resolved]
  - Anxiety [Recovering/Resolving]
  - Agitation [Not Recovered/Not Resolved]
  - Suicidal ideation [Not Recovered/Not Resolved]
  - Major depression [Recovering/Resolving]
  - Eating disorder [Not Recovered/Not Resolved]
  - Borderline personality disorder [Not Recovered/Not Resolved]
  - Craniocerebral injury [Unknown]
  - Intentional self-injury [Not Recovered/Not Resolved]
  - Toxicity to various agents [Recovered/Resolved]
  - Tooth fracture [Unknown]
  - Lip injury [Unknown]
  - Decreased appetite [Unknown]
  - Irritability [Unknown]
  - Post-traumatic stress disorder [Unknown]
  - Depressed mood [Unknown]
  - Hypoaesthesia [Unknown]
  - Emotional disorder [Unknown]
  - Stress [Unknown]
  - Feeling of despair [Unknown]
  - Poor quality sleep [Unknown]
  - Hypersensitivity [Unknown]
  - Pain in extremity [Unknown]
  - Abdominal pain upper [Unknown]
  - Cough [Unknown]
  - Limb injury [Unknown]
  - Lip discolouration [Unknown]
  - Headache [Unknown]
  - Acute sinusitis [Unknown]
  - Rhinitis allergic [Unknown]
  - Concussion [Unknown]
  - Post-traumatic headache [Unknown]
  - Cognitive disorder [Unknown]
  - Mood swings [Unknown]
  - Insomnia [Unknown]
  - Vestibular disorder [Unknown]
  - Neck pain [Unknown]

NARRATIVE: CASE EVENT DATE: 20200101
